FAERS Safety Report 9379542 (Version 2)
Quarter: 2013Q3

REPORT INFORMATION
  Report Type: Spontaneous
  Country: DE (occurrence: DE)
  Receive Date: 20130702
  Receipt Date: 20130711
  Transmission Date: 20140515
  Serious: Yes (Other)
  Sender: FDA-Public Use
  Company Number: DE-EISAI INC-E2007-01222-SPO-DE

PATIENT
  Age: 26 Year
  Sex: Female

DRUGS (5)
  1. FYCOMPA (PERAMPANEL) [Suspect]
     Indication: EPILEPSY
     Dosage: UNKNOWN
     Route: 048
     Dates: start: 20121019, end: 20121213
  2. FYCOMPA (PERAMPANEL) [Suspect]
     Route: 048
     Dates: start: 20121214, end: 20130314
  3. FYCOMPA (PERAMPANEL) [Suspect]
     Route: 048
     Dates: start: 2013
  4. VIMPAT [Concomitant]
     Indication: EPILEPSY
     Route: 048
     Dates: start: 20120601
  5. TOPAMAX [Concomitant]
     Indication: EPILEPSY
     Route: 048
     Dates: start: 20121019

REACTIONS (2)
  - Atonic seizures [Recovering/Resolving]
  - Convulsion [Recovering/Resolving]
